FAERS Safety Report 12280873 (Version 3)
Quarter: 2016Q2

REPORT INFORMATION
  Report Type: Spontaneous
  Country: US (occurrence: US)
  Receive Date: 20160419
  Receipt Date: 20160524
  Transmission Date: 20160815
  Serious: No
  Sender: FDA-Public Use
  Company Number: US-ASTELLAS-2016US013054

PATIENT
  Age: 75 Year
  Sex: Male

DRUGS (2)
  1. LUPRON [Concomitant]
     Active Substance: LEUPROLIDE ACETATE
     Indication: PRODUCT USED FOR UNKNOWN INDICATION
     Route: 030
     Dates: start: 20151223
  2. XTANDI [Suspect]
     Active Substance: ENZALUTAMIDE
     Indication: PROSTATE CANCER
     Dosage: 160 MG (40 MG X 4 CAPSULES), ONCE DAILY
     Route: 048
     Dates: start: 20160212

REACTIONS (12)
  - Haemoptysis [Recovered/Resolved]
  - Ear discomfort [Unknown]
  - Productive cough [Not Recovered/Not Resolved]
  - Back pain [Unknown]
  - Rash [Unknown]
  - Epistaxis [Unknown]
  - Rhinorrhoea [Unknown]
  - Musculoskeletal chest pain [Unknown]
  - Nasal discomfort [Unknown]
  - Nasopharyngitis [Not Recovered/Not Resolved]
  - Head discomfort [Unknown]
  - Pyrexia [Recovered/Resolved]

NARRATIVE: CASE EVENT DATE: 20160409
